FAERS Safety Report 25681909 (Version 1)
Quarter: 2025Q3

REPORT INFORMATION
  Report Type: Spontaneous
  Country: US (occurrence: US)
  Receive Date: 20250814
  Receipt Date: 20250814
  Transmission Date: 20251021
  Serious: No
  Sender: IPSEN BIOPHARMACEUTICALS, INC.
  Company Number: US-IPSEN Group, Research and Development-2025-19843

PATIENT
  Age: 58 Year
  Sex: Male

DRUGS (3)
  1. SOMATULINE DEPOT [Suspect]
     Active Substance: LANREOTIDE ACETATE
     Indication: Carcinoid syndrome
     Dosage: DEEP SC?120MG/.5MSOMATULINE DEPOT PFS
     Dates: start: 202312
  2. CABOMETYX [Concomitant]
     Active Substance: CABOZANTINIB S-MALATE
  3. EVEROLIMUS [Concomitant]
     Active Substance: EVEROLIMUS

REACTIONS (6)
  - Dry skin [Unknown]
  - Acne [Unknown]
  - Anal pruritus [Unknown]
  - Blood pressure increased [Unknown]
  - Dizziness [Unknown]
  - Dysphonia [Unknown]

NARRATIVE: CASE EVENT DATE: 20250701
